FAERS Safety Report 21819887 (Version 1)
Quarter: 2023Q1

REPORT INFORMATION
  Report Type: Spontaneous
  Country: None (occurrence: US)
  Receive Date: 20230104
  Receipt Date: 20230104
  Transmission Date: 20230418
  Serious: No
  Sender: FDA-Public Use
  Company Number: US-Armstrong Pharmaceuticals, Inc.-2136427

PATIENT
  Age: 36 Year
  Sex: Female
  Weight: 81.818 kg

DRUGS (4)
  1. PRIMATENE MIST [Suspect]
     Active Substance: EPINEPHRINE
     Indication: Asthma
     Route: 055
  2. Migraine preventative medication (unspecified) [Concomitant]
  3. Anti-depressant medication (unspecified) [Concomitant]
  4. Low-dose thyroid medication (unspecified) [Concomitant]

REACTIONS (3)
  - Chest pain [Recovered/Resolved]
  - Dyspnoea [Not Recovered/Not Resolved]
  - Cough [Recovered/Resolved]

NARRATIVE: CASE EVENT DATE: 20220924
